FAERS Safety Report 6444264-1 (Version None)
Quarter: 2009Q4

REPORT INFORMATION
  Report Type: 
  Country: None (occurrence: None)
  Receive Date: 20091118
  Receipt Date: 20091110
  Transmission Date: 20100525
  Serious: Yes (Hospitalization)
  Sender: FDA-Public Use
  Company Number: US-ROCHE-668675

PATIENT
  Sex: Female
  Weight: 69.9 kg

DRUGS (1)
  1. CAPECITABINE [Suspect]
     Indication: BREAST CANCER
     Dosage: ROUTE: BY MOUTH
     Route: 048
     Dates: start: 20090801, end: 20091027

REACTIONS (4)
  - DEHYDRATION [None]
  - EATING DISORDER [None]
  - NAUSEA [None]
  - VOMITING [None]
